FAERS Safety Report 23308799 (Version 1)
Quarter: 2023Q4

REPORT INFORMATION
  Report Type: Spontaneous
  Country: GB (occurrence: None)
  Receive Date: 20231216
  Receipt Date: 20231216
  Transmission Date: 20240109
  Serious: Yes (Disabling)
  Sender: FDA-Public Use
  Company Number: None

PATIENT
  Age: 58 Year
  Sex: Female

DRUGS (1)
  1. CIPROFLOXACIN [Suspect]
     Active Substance: CIPROFLOXACIN
     Indication: Diverticulitis
     Dates: start: 20050326, end: 20060326

REACTIONS (7)
  - Tendonitis [None]
  - Neuropathy peripheral [None]
  - Anxiety [None]
  - Feeling hot [None]
  - Diverticulitis [None]
  - Asthenia [None]
  - Decreased activity [None]

NARRATIVE: CASE EVENT DATE: 20050326
